FAERS Safety Report 13655278 (Version 2)
Quarter: 2017Q2

REPORT INFORMATION
  Report Type: Spontaneous
  Country: NL (occurrence: NL)
  Receive Date: 20170615
  Receipt Date: 20170620
  Transmission Date: 20170830
  Serious: Yes (Hospitalization, Disabling, Other)
  Sender: FDA-Public Use
  Company Number: NL-ACCORD-052542

PATIENT
  Age: 27 Year
  Sex: Female

DRUGS (3)
  1. CISPLATIN. [Suspect]
     Active Substance: CISPLATIN
     Indication: SQUAMOUS CELL CARCINOMA OF THE CERVIX
     Dosage: 40 MG M^2 ON DAY 0, 7 AND 14 (3 CYCLES)
     Route: 042
  2. PACLITAXEL/PACLITAXEL LIPOSOME [Suspect]
     Active Substance: PACLITAXEL
     Indication: SQUAMOUS CELL CARCINOMA OF THE CERVIX
  3. CARBOPLATIN. [Suspect]
     Active Substance: CARBOPLATIN
     Indication: SQUAMOUS CELL CARCINOMA OF THE CERVIX
     Dosage: WITH A TARGET AREA UNDER THE CURVE (AUC) OF FIVE

REACTIONS (6)
  - Hypoalbuminaemia [Unknown]
  - Hypomagnesaemia [Unknown]
  - Off label use [Unknown]
  - Haematotoxicity [Unknown]
  - Pancytopenia [Unknown]
  - Acute kidney injury [Not Recovered/Not Resolved]
